FAERS Safety Report 7353066-3 (Version None)
Quarter: 2011Q1

REPORT INFORMATION
  Report Type: 
  Country: None (occurrence: None)
  Receive Date: 20110315
  Receipt Date: 20110307
  Transmission Date: 20110831
  Serious: Yes (Life-Threatening)
  Sender: FDA-Public Use
  Company Number: B0700955A

PATIENT
  Sex: Male

DRUGS (2)
  1. RELENZA [Suspect]
     Indication: INFLUENZA
     Dosage: 20MG PER DAY
     Route: 055
     Dates: start: 20110214
  2. CALONAL [Concomitant]
     Route: 048
     Dates: start: 20110214

REACTIONS (2)
  - ILL-DEFINED DISORDER [None]
  - ABNORMAL BEHAVIOUR [None]
